FAERS Safety Report 23700581 (Version 3)
Quarter: 2024Q2

REPORT INFORMATION
  Report Type: Report from Study
  Country: US (occurrence: US)
  Receive Date: 20240403
  Receipt Date: 20240509
  Transmission Date: 20240715
  Serious: Yes (Other)
  Sender: FDA-Public Use
  Company Number: US-LEO Pharma-369036

PATIENT
  Age: 33 Year
  Sex: Female

DRUGS (4)
  1. ADBRY [Suspect]
     Active Substance: TRALOKINUMAB-LDRM
     Indication: Dermatitis atopic
     Dates: start: 20230731, end: 20240310
  2. LEVOTHYROXINE [Concomitant]
     Active Substance: LEVOTHYROXINE\LEVOTHYROXINE SODIUM
     Indication: Hypothyroidism
     Dosage: STABLE DOSE OF LEVOTHYROXINE SINCE 2015.
     Dates: start: 2015
  3. ZYRTEC [Concomitant]
     Active Substance: CETIRIZINE HYDROCHLORIDE
     Indication: Seasonal allergy
     Dosage: SYSTEMIC USE DAILY, FOR MANY YEARS.
  4. FLUTICASONE [Concomitant]
     Active Substance: FLUTICASONE
     Indication: Seasonal allergy
     Dosage: NASAL FLUTICASONE, DAILY, FOR MANY YEARS.
     Route: 045

REACTIONS (2)
  - Dermatitis exfoliative generalised [Recovered/Resolved]
  - Dermatitis atopic [Recovering/Resolving]
